FAERS Safety Report 7651916-4 (Version None)
Quarter: 2011Q3

REPORT INFORMATION
  Report Type: 
  Country: None (occurrence: None)
  Receive Date: 20110803
  Receipt Date: 20110720
  Transmission Date: 20111222
  Serious: No
  Sender: FDA-Public Use
  Company Number: US-BIOGENIDEC-2011BI027274

PATIENT
  Age: 38 Year
  Sex: Female

DRUGS (3)
  1. TYLENOL-500 [Concomitant]
     Indication: PREMEDICATION
     Dates: start: 20110715
  2. BENADRYL [Concomitant]
     Indication: PREMEDICATION
     Dates: start: 20110715
  3. TYSABRI [Suspect]
     Indication: MULTIPLE SCLEROSIS
     Route: 042
     Dates: start: 20110715

REACTIONS (7)
  - DIARRHOEA [None]
  - ADVERSE DRUG REACTION [None]
  - PAIN [None]
  - NAUSEA [None]
  - URINARY TRACT INFECTION [None]
  - HEADACHE [None]
  - PRURITUS [None]
